FAERS Safety Report 15283277 (Version 5)
Quarter: 2025Q2

REPORT INFORMATION
  Report Type: Spontaneous
  Country: FR (occurrence: FR)
  Receive Date: 20180816
  Receipt Date: 20250417
  Transmission Date: 20250717
  Serious: Yes (Death, Hospitalization, Other)
  Sender: AUROBINDO
  Company Number: None

PATIENT
  Sex: Female
  Weight: 33 kg

DRUGS (10)
  1. OXYCODONE [Suspect]
     Active Substance: OXYCODONE
     Indication: Pain
     Dosage: 5 MILLIGRAM, ONCE A DAY
     Route: 048
     Dates: start: 20180227, end: 20180309
  2. OXYCODONE [Suspect]
     Active Substance: OXYCODONE
     Dosage: 5 MILLIGRAM
     Route: 048
     Dates: start: 20180227, end: 20180308
  3. NEURONTIN [Suspect]
     Active Substance: GABAPENTIN
     Indication: Neuralgia
     Dosage: 3 DOSAGE FORM, ONCE A DAY
     Route: 048
     Dates: start: 20180227, end: 20180309
  4. FENTANYL [Suspect]
     Active Substance: FENTANYL
     Indication: Pain
     Dosage: 12 MICROGRAM, 3 TIMES A DAY
     Route: 062
     Dates: start: 20180227, end: 20180309
  5. FENTANYL [Suspect]
     Active Substance: FENTANYL
     Dosage: 25 MICROGRAM, 3 TIMES A DAY
     Route: 062
     Dates: start: 20180227, end: 20180309
  6. FENTANYL [Suspect]
     Active Substance: FENTANYL
     Dosage: 12 MICROGRAM, 3 TIMES A DAY
     Route: 062
     Dates: start: 20180227, end: 20180308
  7. FENTANYL [Suspect]
     Active Substance: FENTANYL
     Indication: Pain
     Route: 045
  8. ZITHROMAX [Suspect]
     Active Substance: AZITHROMYCIN DIHYDRATE
     Indication: Bronchitis
     Dosage: 500 MILLIGRAM, ONCE A DAY
     Route: 048
     Dates: start: 19990301, end: 19990303
  9. FLUINDIONE [Suspect]
     Active Substance: FLUINDIONE
     Indication: Cardiac valve disease
     Dosage: 3.75 MILLIGRAM, TWO TIMES A DAY
     Route: 048
     Dates: start: 2005, end: 20171127
  10. FLUINDIONE [Suspect]
     Active Substance: FLUINDIONE
     Dosage: 7.5 MILLIGRAM, TWO TIMES A DAY
     Route: 048
     Dates: start: 2005, end: 20171127

REACTIONS (17)
  - Death [Fatal]
  - Renal failure [Not Recovered/Not Resolved]
  - Autoimmune hepatitis [Not Recovered/Not Resolved]
  - Atrial fibrillation [Not Recovered/Not Resolved]
  - Respiratory failure [Not Recovered/Not Resolved]
  - Acute pulmonary oedema [Recovered/Resolved]
  - Hepatic failure [Not Recovered/Not Resolved]
  - Coma [Not Recovered/Not Resolved]
  - Respiratory distress [Not Recovered/Not Resolved]
  - Syncope [Not Recovered/Not Resolved]
  - Pulmonary embolism [Not Recovered/Not Resolved]
  - Cerebrovascular accident [Not Recovered/Not Resolved]
  - Osteoporosis [Not Recovered/Not Resolved]
  - Fall [Not Recovered/Not Resolved]
  - Nausea [Not Recovered/Not Resolved]
  - Vomiting [Not Recovered/Not Resolved]
  - Pleurisy [Not Recovered/Not Resolved]

NARRATIVE: CASE EVENT DATE: 19990101
